FAERS Safety Report 25615113 (Version 2)
Quarter: 2025Q4

REPORT INFORMATION
  Report Type: Spontaneous
  Country: JP (occurrence: JP)
  Receive Date: 20250729
  Receipt Date: 20251224
  Transmission Date: 20260117
  Serious: Yes (Other)
  Sender: ASTELLAS
  Company Number: JP-ASTELLAS-2025-AER-040854

PATIENT
  Age: 7 Decade
  Sex: Male

DRUGS (1)
  1. PADCEV [Suspect]
     Active Substance: ENFORTUMAB VEDOTIN-EJFV
     Indication: Product used for unknown indication
     Dosage: 3 WEEKS ON, 1 WEEK OFF
     Route: 042

REACTIONS (1)
  - Pericarditis malignant [Unknown]

NARRATIVE: CASE EVENT DATE: 20250718
